FAERS Safety Report 8601151-8 (Version None)
Quarter: 2012Q3

REPORT INFORMATION
  Report Type: 
  Country: None (occurrence: None)
  Receive Date: 20120817
  Receipt Date: 20120809
  Transmission Date: 20120928
  Serious: Yes (Other)
  Sender: FDA-Public Use
  Company Number: US-MYLANLABS-2012S1007993

PATIENT
  Age: 32 Year
  Sex: Female

DRUGS (2)
  1. AMNESTEEM [Suspect]
     Indication: ACNE
     Dates: start: 20111028, end: 20120101
  2. YAZ [Concomitant]
     Indication: CONTRACEPTION
     Route: 048

REACTIONS (2)
  - MATERNAL EXPOSURE BEFORE PREGNANCY [None]
  - HEADACHE [None]
